FAERS Safety Report 8228958-3 (Version None)
Quarter: 2012Q1

REPORT INFORMATION
  Report Type: 
  Country: None (occurrence: None)
  Receive Date: 20120322
  Receipt Date: 20120319
  Transmission Date: 20120608
  Serious: Yes (Death)
  Sender: FDA-Public Use
  Company Number: US-PFIZER INC-2012019411

PATIENT
  Sex: Male

DRUGS (3)
  1. XALKORI [Suspect]
     Indication: LUNG NEOPLASM MALIGNANT
     Dosage: 250 MG, 2X/DAY
     Dates: start: 20120221
  2. XALKORI [Suspect]
     Indication: BRONCHIAL CARCINOMA
  3. XALKORI [Suspect]

REACTIONS (4)
  - BURNING SENSATION [None]
  - ARTHRALGIA [None]
  - DEATH [None]
  - PAIN IN EXTREMITY [None]
